FAERS Safety Report 8517576-5 (Version None)
Quarter: 2012Q3

REPORT INFORMATION
  Report Type: 
  Country: None (occurrence: None)
  Receive Date: 20120718
  Receipt Date: 20110418
  Transmission Date: 20120928
  Serious: Yes (Other)
  Sender: FDA-Public Use
  Company Number: US-BAYER-200811982NA

PATIENT
  Age: 49 Year
  Sex: Female
  Weight: 55 kg

DRUGS (44)
  1. MAGNEVIST [Suspect]
     Dates: start: 20040520, end: 20040520
  2. THYROID THERAPY [Concomitant]
  3. FERROUS SULFATE TAB [Concomitant]
  4. MIACALCIN [Concomitant]
  5. CYTOXAN [Concomitant]
     Dates: start: 19880101, end: 19910101
  6. OXANDRIN [Concomitant]
  7. MAGNEVIST [Suspect]
     Dates: start: 19991109, end: 19991109
  8. OMNISCAN [Suspect]
     Indication: NUCLEAR MAGNETIC RESONANCE IMAGING
     Dates: start: 20050130, end: 20050130
  9. FOLIC ACID [Concomitant]
  10. PROCARDIA [Concomitant]
  11. SYNTHROID [Concomitant]
  12. NEPHROVITE [VIT C,VIT H,B5,B12,B9,B3,B6,B2,B1 HCL] [Concomitant]
  13. ADVAIR DISKUS 100/50 [Concomitant]
  14. ZEMPLAR [Concomitant]
  15. ARANESP [Concomitant]
  16. MAGNEVIST [Suspect]
     Indication: NUCLEAR MAGNETIC RESONANCE IMAGING ABDOMINAL
     Dates: start: 19970430, end: 19970430
  17. ALEVE [Concomitant]
  18. PROGRAF [Concomitant]
  19. MAGNEVIST [Suspect]
     Dates: start: 19981231, end: 19981231
  20. EPOGEN [Concomitant]
  21. EXFORGE [Concomitant]
  22. ACTIVASE [Concomitant]
  23. MAGNEVIST [Suspect]
     Indication: NUCLEAR MAGNETIC RESONANCE IMAGING
     Dates: start: 19961030, end: 19961030
  24. MAGNEVIST [Suspect]
     Dates: start: 20020130, end: 20020130
  25. MAGNEVIST [Suspect]
     Dates: start: 20050130, end: 20050130
  26. OMNISCAN [Suspect]
     Dates: start: 20050320, end: 20050320
  27. CELEBREX [Concomitant]
  28. ZESTRIL [Concomitant]
  29. RENAGEL [Concomitant]
  30. METOPROLOL SUCCINATE [Concomitant]
  31. AMIGEN [Concomitant]
  32. MAGNEVIST [Suspect]
     Dates: start: 19971117, end: 19971117
  33. MAGNEVIST [Suspect]
     Dosage: 9.7 ML, ONCE
     Dates: start: 20030320, end: 20030320
  34. OMNISCAN [Suspect]
     Dosage: UNK
  35. PREMPRO [Concomitant]
  36. ROCALTROL [Concomitant]
  37. SPIRONOLACTONE [Concomitant]
  38. DEMADEX [Concomitant]
  39. MAGNEVIST [Suspect]
     Dates: start: 20001108, end: 20001108
  40. SENSIPAR [Concomitant]
  41. MYFORTIC [Concomitant]
  42. PREDNISONE [Concomitant]
  43. CLONIDINE [Concomitant]
  44. AMLODIPINE BESYLATE [Concomitant]

REACTIONS (37)
  - GENERAL PHYSICAL HEALTH DETERIORATION [None]
  - SKIN TIGHTNESS [None]
  - JOINT RANGE OF MOTION DECREASED [None]
  - SKIN INDURATION [None]
  - SKIN HYPERPIGMENTATION [None]
  - MUSCLE TIGHTNESS [None]
  - JOINT ANKYLOSIS [None]
  - MUSCULOSKELETAL STIFFNESS [None]
  - SKIN HYPERTROPHY [None]
  - PULMONARY FIBROSIS [None]
  - MYOCARDIAL FIBROSIS [None]
  - ARTHRALGIA [None]
  - FIBROSIS [None]
  - RASH PAPULAR [None]
  - JOINT STIFFNESS [None]
  - JOINT CONTRACTURE [None]
  - PAIN [None]
  - SCAR [None]
  - OEDEMA PERIPHERAL [None]
  - SKIN DISORDER [None]
  - DYSPNOEA [None]
  - MUSCULAR WEAKNESS [None]
  - SKIN LESION [None]
  - MELANOCYTIC NAEVUS [None]
  - EXTREMITY CONTRACTURE [None]
  - SKIN FIBROSIS [None]
  - NEPHROGENIC SYSTEMIC FIBROSIS [None]
  - MUSCULOSKELETAL PAIN [None]
  - SKIN WRINKLING [None]
  - ARTHROFIBROSIS [None]
  - INJURY [None]
  - PARAESTHESIA [None]
  - GAIT DISTURBANCE [None]
  - TENDON PAIN [None]
  - HYPOAESTHESIA [None]
  - ABASIA [None]
  - RASH MACULAR [None]
